FAERS Safety Report 26142977 (Version 1)
Quarter: 2025Q4

REPORT INFORMATION
  Report Type: Spontaneous
  Country: GB (occurrence: GB)
  Receive Date: 20251211
  Receipt Date: 20251211
  Transmission Date: 20260118
  Serious: Yes (Hospitalization, Other)
  Sender: TEVA
  Company Number: None

PATIENT
  Age: 64 Year
  Sex: Female

DRUGS (22)
  1. WARFARIN [Suspect]
     Active Substance: WARFARIN
     Indication: Product used for unknown indication
     Dosage: PT STATES TAKES AT NIGHT SUNDAY,TUESDAY,THURSDAY AND SATURDAY 5MG AND REST OF THE WEEK 6MG
     Route: 065
  2. Evacal-D3 [Concomitant]
     Indication: Product used for unknown indication
     Dosage: 1500 MG / 400 UNIT
  3. MEBEVERINE [Concomitant]
     Active Substance: MEBEVERINE
     Indication: Product used for unknown indication
  4. BISOPROLOL [Concomitant]
     Active Substance: BISOPROLOL
     Indication: Product used for unknown indication
     Dosage: DAILY DOSE: 10 MG
  5. FERROUS SULFATE [Concomitant]
     Active Substance: FERROUS SULFATE
     Indication: Product used for unknown indication
     Dosage: DAILY DOSE:200  MG
  6. VENTOLIN [Concomitant]
     Active Substance: ALBUTEROL SULFATE
     Indication: Product used for unknown indication
     Dosage: 100 MICROGRAMS / DOSE EVOHALER, ONE OR TWO PUFFS TO BE INHALED UP TO FOUR TIMES A DAY-NOT USING
  7. LOPERAMIDE [Concomitant]
     Active Substance: LOPERAMIDE
     Indication: Product used for unknown indication
     Dosage: TWO TO BE TAKEN IMMEDIATELY THEN ONE TO BE TAKEN AFTER EACH LOOSE MOTION-TAKES 2MG ONCE A DAY
  8. OMEPRAZOLE [Concomitant]
     Active Substance: OMEPRAZOLE
     Indication: Product used for unknown indication
     Dosage: DAILY DOSE: 2 DOSAGE FORM
  9. SODIUM ALGINATE [Concomitant]
     Active Substance: SODIUM ALGINATE
     Indication: Product used for unknown indication
     Dosage: 500 MG / 5 ML / POTASSIUM BICARBONATE 100 MG / 5 ML ORAL SUSPENSION SUGAR FREE AS, SUGAR FREE AS ...
  10. AproDerm [Concomitant]
     Indication: Product used for unknown indication
     Dosage: AS DIRECTED-USES AS NEEDED
  11. CARBOMER [Concomitant]
     Active Substance: CARBOMER
     Indication: Product used for unknown indication
     Dosage: 2 MG / G LIQUID GEL,  ONE DROP AS NEEDED-USING AS NEEDED
  12. Cetraben [Concomitant]
     Indication: Product used for unknown indication
  13. RAMIPRIL [Concomitant]
     Active Substance: RAMIPRIL
     Indication: Product used for unknown indication
     Dosage: 2.5 MG, S ONE TO BE TAKEN EACH DAY
  14. DAPAGLIFLOZIN [Concomitant]
     Active Substance: DAPAGLIFLOZIN
     Indication: Product used for unknown indication
     Dosage: DAILY DOSE: 10 MG
  15. PREDNISOLONE [Concomitant]
     Active Substance: PREDNISOLONE
     Indication: Product used for unknown indication
     Dosage: 5 MG GASTRO-RESISTANT TABLETS TAKE ONE TABLETS ONCE A DAY (TOTAL DAILY DOSE = 7.5 MG)
  16. SPIRONOLACTONE [Concomitant]
     Active Substance: SPIRONOLACTONE
     Indication: Product used for unknown indication
     Dosage: 25 MG TABLETS
  17. Flexitol [Concomitant]
     Indication: Product used for unknown indication
     Dosage: 0% UREA CREAM APPLY ONCE A DAY TO BOTH FEET ON SOLES AND HEELS AND THE TIP OF THE LEFT 3 RD TOE W...
  18. ENOXAPARIN [Suspect]
     Active Substance: ENOXAPARIN
     Indication: Product used for unknown indication
     Route: 065
  19. ASPIRIN [Suspect]
     Active Substance: ASPIRIN
     Indication: Product used for unknown indication
     Route: 065
  20. DENOSUMAB [Concomitant]
     Active Substance: DENOSUMAB
     Indication: Product used for unknown indication
     Dosage: 60 MG / 1 ML, 60 MG / 1 ML SOLUTION FOR INJECTION PRE-FILLED SYRINGES, BY PRACTICE NURSE EVERY 6 ...
     Route: 058
  21. METHOTREXATE [Concomitant]
     Active Substance: METHOTREXATE
     Indication: Product used for unknown indication
     Dosage: 15 MG / 0.3 ML SOLUTION FOR INJECTION PRE-FILLED PENS
  22. SIMVASTATIN [Concomitant]
     Active Substance: SIMVASTATIN
     Indication: Product used for unknown indication

REACTIONS (1)
  - Haematoma [Unknown]
